FAERS Safety Report 10222770 (Version 1)
Quarter: 2014Q2

REPORT INFORMATION
  Report Type: Spontaneous
  Country: TW (occurrence: TW)
  Receive Date: 20140606
  Receipt Date: 20140606
  Transmission Date: 20141212
  Serious: Yes (Other)
  Sender: FDA-Public Use
  Company Number: TW-BRISTOL-MYERS SQUIBB COMPANY-20891032

PATIENT
  Age: 66 Year
  Sex: Male
  Weight: 76.1 kg

DRUGS (4)
  1. MITOMYCIN-C [Suspect]
     Indication: CHOLANGIOCARCINOMA
     Dosage: 20DEC2013?10JAN2014-07FEB2014-8MG
     Route: 042
     Dates: start: 20131101
  2. GEMZAR [Concomitant]
  3. FLUOROURACIL [Concomitant]
  4. LEUCOVORIN [Concomitant]

REACTIONS (1)
  - Thrombocytopenia [Unknown]
